FAERS Safety Report 4607743-5 (Version None)
Quarter: 2005Q2

REPORT INFORMATION
  Report Type: 
  Country: None (occurrence: None)
  Receive Date: 20050309
  Receipt Date: 20050222
  Transmission Date: 20051028
  Serious: Yes (Death)
  Sender: FDA-Public Use
  Company Number: DSA_25973_2005

PATIENT
  Sex: Female

DRUGS (13)
  1. LORAZEPAM [Suspect]
     Dosage: 2 MG Q DAY PO
     Route: 048
     Dates: start: 20031226
  2. EUNERPAN [Suspect]
     Dosage: 100 MG Q DAY
     Dates: start: 20031222
  3. EUNERPAN [Suspect]
     Dosage: 250 MG Q DAY
     Dates: start: 20031211, end: 20031221
  4. EUNERPAN [Suspect]
     Dosage: 125 MG Q DAY
     Dates: start: 20031205, end: 20031210
  5. RISPERDAL [Suspect]
     Dosage: 4 MG Q DAY
     Dates: start: 20031211
  6. RISPERDAL [Suspect]
     Dosage: DF Q DAY
     Dates: start: 20031204, end: 20031210
  7. CARBAMAZEPINE [Suspect]
     Dosage: 450 MG Q DAY
  8. TRUXAL [Suspect]
     Dosage: 400 MG Q DAY
     Dates: start: 20031223
  9. TRUXAL [Suspect]
     Dosage: 200 MG Q DAY
     Dates: start: 20031222, end: 20031222
  10. DELIX [Concomitant]
  11. ACETYLSALICYLIC ACID SRT [Concomitant]
  12. ISOSORBIDE MONONITRATE [Concomitant]
  13. DYTIDE H [Concomitant]

REACTIONS (5)
  - CARDIAC FAILURE ACUTE [None]
  - CIRCULATORY COLLAPSE [None]
  - CYANOSIS [None]
  - LOSS OF CONSCIOUSNESS [None]
  - RESPIRATORY ARREST [None]
